FAERS Safety Report 11269672 (Version 4)
Quarter: 2017Q1

REPORT INFORMATION
  Report Type: Spontaneous
  Country: JP (occurrence: JP)
  Receive Date: 20150714
  Receipt Date: 20170206
  Transmission Date: 20170428
  Serious: Yes (Life-Threatening, Hospitalization, Other)
  Sender: FDA-Public Use
  Company Number: PHJP2015JP007290

PATIENT
  Age: 37 Year
  Sex: Female
  Weight: 55 kg

DRUGS (1)
  1. CO-DIOVAN [Suspect]
     Active Substance: HYDROCHLOROTHIAZIDE\VALSARTAN
     Indication: ESSENTIAL HYPERTENSION
     Dosage: 1 DF, QD
     Route: 048
     Dates: start: 201303, end: 20150418

REACTIONS (5)
  - Maternal exposure during pregnancy [Unknown]
  - Oligohydramnios [Recovered/Resolved with Sequelae]
  - Premature labour [Unknown]
  - Placental disorder [Unknown]
  - Polyhydramnios [Recovering/Resolving]

NARRATIVE: CASE EVENT DATE: 20150418
